FAERS Safety Report 8419210-1 (Version None)
Quarter: 2012Q2

REPORT INFORMATION
  Report Type: 
  Country: None (occurrence: None)
  Receive Date: 20120607
  Receipt Date: 20120523
  Transmission Date: 20120825
  Serious: Yes (Hospitalization, Other)
  Sender: FDA-Public Use
  Company Number: US-ARROW GEN-2012-09209

PATIENT
  Age: 82 Year
  Sex: Female

DRUGS (1)
  1. CITALOPRAM HYDROBROMIDE [Suspect]
     Indication: SUICIDE ATTEMPT
     Dosage: 1.6 G, SINGLE
     Route: 065

REACTIONS (7)
  - OVERDOSE [None]
  - GRAND MAL CONVULSION [None]
  - BUNDLE BRANCH BLOCK LEFT [None]
  - SINUS ARREST [None]
  - NODAL ARRHYTHMIA [None]
  - ELECTROCARDIOGRAM QRS COMPLEX PROLONGED [None]
  - ELECTROCARDIOGRAM QT PROLONGED [None]
